FAERS Safety Report 10535996 (Version 2)
Quarter: 2014Q4

REPORT INFORMATION
  Report Type: Spontaneous
  Country: US (occurrence: US)
  Receive Date: 20141022
  Receipt Date: 20141022
  Transmission Date: 20150529
  Serious: No
  Sender: FDA-Public Use
  Company Number: US-RECKITT BENCKISER PHARMACEUTICAL, INC-RB-41795-2012

PATIENT

DRUGS (1)
  1. SUBOXONE [Suspect]
     Active Substance: BUPRENORPHINE HYDROCHLORIDE\NALOXONE HYDROCHLORIDE
     Indication: DRUG DEPENDENCE
     Dosage: ONCE IN THE MORNING
     Route: 060
     Dates: start: 2012, end: 2012

REACTIONS (6)
  - Swollen tongue [Recovered/Resolved]
  - Toothache [Recovered/Resolved]
  - Pyrexia [Recovered/Resolved]
  - Tongue disorder [Recovered/Resolved]
  - Glossitis [Recovered/Resolved]
  - Stomatitis [Recovered/Resolved]

NARRATIVE: CASE EVENT DATE: 2012
